FAERS Safety Report 4838317-9 (Version None)
Quarter: 2005Q4

REPORT INFORMATION
  Report Type: 
  Country: None (occurrence: None)
  Receive Date: 20051123
  Receipt Date: 20051117
  Transmission Date: 20060501
  Serious: Yes (Life-Threatening, Hospitalization, Other)
  Sender: FDA-Public Use
  Company Number: 2005RR-01172

PATIENT
  Age: 73 Year
  Sex: Male
  Weight: 82.6 kg

DRUGS (6)
  1. ASPIRIN [Suspect]
     Indication: KNEE ARTHROPLASTY
     Dosage: 75 MG, QD, ORAL; 150 MG, QD, ORAL
     Route: 048
     Dates: start: 20020508, end: 20051014
  2. ASPIRIN [Suspect]
     Indication: KNEE ARTHROPLASTY
     Dosage: 75 MG, QD, ORAL; 150 MG, QD, ORAL
     Route: 048
     Dates: start: 20020508, end: 20051014
  3. DICLOFENAC SODIUM TABLETS 50MG (DICLOFENAC SODIUM) TABLET, 50MG [Suspect]
     Indication: KNEE ARTHROPLASTY
     Dosage: 50 MG, TID, ORAL
     Route: 048
     Dates: start: 20051006, end: 20051014
  4. IBUPROFEN [Suspect]
     Indication: OSTEOARTHRITIS
     Dosage: GEL 5% PAN, TOPICAL
     Route: 061
     Dates: start: 20040329, end: 20051013
  5. NIFEDIPINE [Concomitant]
  6. XATRAL XL [Concomitant]

REACTIONS (3)
  - BENIGN PROSTATIC HYPERPLASIA [None]
  - DUODENAL ULCER [None]
  - RECTAL HAEMORRHAGE [None]
